FAERS Safety Report 9944647 (Version 1)
Quarter: 2014Q1

REPORT INFORMATION
  Report Type: Report from Study
  Country: US (occurrence: US)
  Receive Date: 20140303
  Receipt Date: 20140303
  Transmission Date: 20141002
  Serious: No
  Sender: FDA-Public Use
  Company Number: US-ABBVIE-13P-163-1056030-00

PATIENT
  Age: 58 Year
  Sex: Female
  Weight: 77.18 kg

DRUGS (4)
  1. HUMIRA [Suspect]
     Indication: RHEUMATOID ARTHRITIS
     Route: 058
     Dates: start: 2010
  2. METHOTREXATE [Concomitant]
     Indication: RHEUMATOID ARTHRITIS
  3. FOLIC ACID [Concomitant]
     Indication: DRUG THERAPY
  4. HYDROQUINONE [Concomitant]
     Indication: RHEUMATOID ARTHRITIS

REACTIONS (3)
  - Ear infection [Recovering/Resolving]
  - Pharyngitis [Recovering/Resolving]
  - Diarrhoea [Recovered/Resolved]
